FAERS Safety Report 15204143 (Version 3)
Quarter: 2018Q3

REPORT INFORMATION
  Report Type: Spontaneous
  Country: US (occurrence: US)
  Receive Date: 20180726
  Receipt Date: 20180919
  Transmission Date: 20181010
  Serious: No
  Sender: FDA-Public Use
  Company Number: US-GLAXOSMITHKLINE-US2018GSK129023

PATIENT
  Age: 35 Year
  Sex: Female

DRUGS (2)
  1. LEMTRADA [Concomitant]
     Active Substance: ALEMTUZUMAB
     Indication: MULTIPLE SCLEROSIS
     Dosage: 12 MG, QD
     Route: 042
     Dates: start: 20180618, end: 20180622
  2. VALTREX [Suspect]
     Active Substance: VALACYCLOVIR HYDROCHLORIDE
     Indication: PRODUCT USED FOR UNKNOWN INDICATION
     Dosage: UNK

REACTIONS (10)
  - Headache [Unknown]
  - Rash erythematous [Unknown]
  - Body temperature fluctuation [Unknown]
  - Urticaria [Unknown]
  - Rash papular [Unknown]
  - Mobility decreased [Unknown]
  - Pain [Unknown]
  - Hyperhidrosis [Unknown]
  - Bedridden [Unknown]
  - Dizziness [Unknown]

NARRATIVE: CASE EVENT DATE: 201807
